FAERS Safety Report 5702245-7 (Version None)
Quarter: 2008Q2

REPORT INFORMATION
  Report Type: 
  Country: None (occurrence: None)
  Receive Date: 20080411
  Receipt Date: 20080220
  Transmission Date: 20081010
  Serious: No
  Sender: FDA-Public Use
  Company Number: US-ABBOTT-08P-163-0439508-00

PATIENT
  Sex: Female
  Weight: 90.8 kg

DRUGS (3)
  1. DEPAKOTE [Suspect]
     Indication: BIPOLAR DISORDER
     Route: 048
     Dates: start: 20060101
  2. BUPROPION HCL [Suspect]
     Indication: MAJOR DEPRESSION
     Route: 048
     Dates: start: 20080204, end: 20080221
  3. HYOSCYAMINE SULFATE [Concomitant]
     Indication: IRRITABLE BOWEL SYNDROME
     Route: 048
     Dates: start: 20070101

REACTIONS (2)
  - DYSKINESIA [None]
  - TREMOR [None]
